FAERS Safety Report 8612705-7 (Version None)
Quarter: 2012Q3

REPORT INFORMATION
  Report Type: 
  Country: None (occurrence: None)
  Receive Date: 20120822
  Receipt Date: 20110812
  Transmission Date: 20120928
  Serious: No
  Sender: FDA-Public Use
  Company Number: US-ASTRAZENECA-2011SE48748

PATIENT
  Age: 68 Year
  Sex: Female

DRUGS (1)
  1. SYMBICORT [Suspect]
     Indication: ASTHMA
     Dosage: 160/ 4.5 MICROGRAMMS TOTAL DAILY DOSE, TWO TIMES DAILY
     Route: 055
     Dates: start: 20110801

REACTIONS (1)
  - DYSGEUSIA [None]
